FAERS Safety Report 4743364-1 (Version None)
Quarter: 2005Q3

REPORT INFORMATION
  Report Type: 
  Country: None (occurrence: None)
  Receive Date: 20050809
  Receipt Date: 20050727
  Transmission Date: 20060218
  Serious: Yes (Other)
  Sender: FDA-Public Use
  Company Number: 2005107711

PATIENT
  Age: 49 Year
  Sex: Female
  Weight: 83.9154 kg

DRUGS (5)
  1. CALAN [Suspect]
     Indication: BLOOD PRESSURE
     Dosage: 480 MG (240 MG, TWICE DAILY), 10 YEARS AGO
  2. SYNTHROID [Concomitant]
  3. PREVACID [Concomitant]
  4. VALIUM [Concomitant]
  5. DICLOXACILLIN [Concomitant]

REACTIONS (17)
  - ABDOMINAL DISCOMFORT [None]
  - ARTHRALGIA [None]
  - BLOOD PRESSURE DECREASED [None]
  - CAROTID ARTERY DISEASE [None]
  - FEELING ABNORMAL [None]
  - FEELING DRUNK [None]
  - HEADACHE [None]
  - HEART RATE DECREASED [None]
  - LETHARGY [None]
  - MEMORY IMPAIRMENT [None]
  - NECK PAIN [None]
  - OVERDOSE [None]
  - PAIN [None]
  - PALPITATIONS [None]
  - TINNITUS [None]
  - VISUAL ACUITY REDUCED [None]
  - VOMITING [None]
